FAERS Safety Report 6135043-3 (Version None)
Quarter: 2009Q1

REPORT INFORMATION
  Report Type: 
  Country: None (occurrence: None)
  Receive Date: 20090327
  Receipt Date: 20090317
  Transmission Date: 20090719
  Serious: Yes (Death, Hospitalization, Other)
  Sender: FDA-Public Use
  Company Number: US-PFIZER INC-2008001314

PATIENT
  Sex: Female
  Weight: 145.45 kg

DRUGS (3)
  1. CHANTIX [Suspect]
     Indication: SMOKING CESSATION THERAPY
     Dosage: UNK
     Dates: start: 20070301, end: 20070101
  2. ALL OTHER THERAPEUTIC PRODUCTS [Concomitant]
  3. ANTIDEPRESSANTS [Concomitant]

REACTIONS (4)
  - CARBON DIOXIDE INCREASED [None]
  - CHRONIC OBSTRUCTIVE PULMONARY DISEASE [None]
  - MYOCARDIAL INFARCTION [None]
  - RESPIRATORY DISORDER [None]
